FAERS Safety Report 20590472 (Version 1)
Quarter: 2022Q1

REPORT INFORMATION
  Report Type: Report from Study
  Country: CA (occurrence: CA)
  Receive Date: 20220314
  Receipt Date: 20220314
  Transmission Date: 20220424
  Serious: Yes (Other)
  Sender: FDA-Public Use
  Company Number: CA-NOVARTISPH-PHHY2019CA153742

PATIENT
  Age: 62 Year
  Sex: Female

DRUGS (2)
  1. EXJADE [Suspect]
     Active Substance: DEFERASIROX
     Indication: Iron overload
     Dosage: UNK
     Route: 048
  2. JADENU [Suspect]
     Active Substance: DEFERASIROX
     Indication: Anaemia
     Dosage: UNK
     Route: 048
     Dates: start: 20210129

REACTIONS (3)
  - Bone marrow transplant rejection [Unknown]
  - Serum ferritin increased [Unknown]
  - Feeling abnormal [Unknown]

NARRATIVE: CASE EVENT DATE: 20110101
